FAERS Safety Report 6544818-8 (Version None)
Quarter: 2010Q1

REPORT INFORMATION
  Report Type: 
  Country: None (occurrence: None)
  Receive Date: 20100121
  Receipt Date: 20100110
  Transmission Date: 20100710
  Serious: Yes (Other)
  Sender: FDA-Public Use
  Company Number: US-BAXTER-2010BH000849

PATIENT
  Sex: Male

DRUGS (1)
  1. HEPARIN SODIUM INJECTION [Suspect]
     Indication: DRUG USE FOR UNKNOWN INDICATION
     Route: 065
     Dates: start: 20071001

REACTIONS (8)
  - ASTHENIA [None]
  - CARDIAC DISORDER [None]
  - DYSPNOEA [None]
  - HYPERHIDROSIS [None]
  - NAUSEA [None]
  - SHOCK [None]
  - SYNCOPE [None]
  - VOMITING [None]
